FAERS Safety Report 19267806 (Version 6)
Quarter: 2021Q3

REPORT INFORMATION
  Report Type: Spontaneous
  Country: US (occurrence: US)
  Receive Date: 20210518
  Receipt Date: 20210825
  Transmission Date: 20211014
  Serious: Yes (Other)
  Sender: FDA-Public Use
  Company Number: US-GLAXOSMITHKLINE-US2021AMR103599

PATIENT
  Age: 59 Year
  Sex: Female

DRUGS (6)
  1. ZEJULA [Suspect]
     Active Substance: NIRAPARIB
     Dosage: 300 MG, QD
     Dates: start: 20210505, end: 20210816
  2. ZEJULA [Suspect]
     Active Substance: NIRAPARIB
     Dosage: 100 MG, TID
  3. ZEJULA [Suspect]
     Active Substance: NIRAPARIB
     Dosage: 300 MG, QD
  4. ZEJULA [Suspect]
     Active Substance: NIRAPARIB
     Indication: OVARIAN CANCER
     Dosage: 300 MG, QD
     Dates: start: 20210504
  5. ZEJULA [Suspect]
     Active Substance: NIRAPARIB
     Dosage: 300 MG, QD
  6. ZEJULA [Suspect]
     Active Substance: NIRAPARIB
     Dosage: 300 MG, QD

REACTIONS (17)
  - Hallucination, visual [Unknown]
  - Loss of consciousness [Unknown]
  - Tongue ulceration [Unknown]
  - Hypertension [Unknown]
  - Dyspnoea [Not Recovered/Not Resolved]
  - Insomnia [Unknown]
  - Vision blurred [Unknown]
  - Oropharyngeal pain [Unknown]
  - Vomiting [Unknown]
  - Thirst [Unknown]
  - Productive cough [Unknown]
  - Feeling abnormal [Unknown]
  - Tremor [Unknown]
  - Headache [Not Recovered/Not Resolved]
  - Cough [Unknown]
  - Confusional state [Unknown]
  - Dysphonia [Unknown]

NARRATIVE: CASE EVENT DATE: 202105
